FAERS Safety Report 25776553 (Version 2)
Quarter: 2025Q3

REPORT INFORMATION
  Report Type: Spontaneous
  Country: US (occurrence: US)
  Receive Date: 20250909
  Receipt Date: 20250909
  Transmission Date: 20251021
  Serious: No
  Sender: DOMPE FARMACEUTICI
  Company Number: US-FARMAPROD-202502-0634

PATIENT
  Age: 81 Year
  Sex: Male

DRUGS (11)
  1. OXERVATE [Suspect]
     Active Substance: CENEGERMIN-BKBJ
     Indication: Neurotrophic keratopathy
     Route: 047
     Dates: start: 20250224
  2. OXERVATE [Suspect]
     Active Substance: CENEGERMIN-BKBJ
     Indication: Hypoaesthesia eye
  3. ELIQUIS [Concomitant]
     Active Substance: APIXABAN
  4. FLECAINIDE ACETATE [Concomitant]
     Active Substance: FLECAINIDE ACETATE
  5. CIALIS [Concomitant]
     Active Substance: TADALAFIL
  6. GABAPENTIN [Concomitant]
     Active Substance: GABAPENTIN
  7. HYPROMELLOSE, UNSPECIFIED [Concomitant]
     Active Substance: HYPROMELLOSE, UNSPECIFIED
  8. METOPROLOL SUCCINATE [Concomitant]
     Active Substance: METOPROLOL SUCCINATE
  9. ASPIRIN [Concomitant]
     Active Substance: ASPIRIN
  10. ANTIBIOTIC EYE [Concomitant]
  11. SYSTANE ULTRA PRESERVATIVE FREE [Concomitant]
     Active Substance: POLYETHYLENE GLYCOL 400\PROPYLENE GLYCOL

REACTIONS (5)
  - Eye pain [Not Recovered/Not Resolved]
  - Eye pruritus [Not Recovered/Not Resolved]
  - Somnolence [Unknown]
  - Dry eye [Unknown]
  - Eyelid pain [Unknown]

NARRATIVE: CASE EVENT DATE: 20250225
